FAERS Safety Report 23760613 (Version 1)
Quarter: 2024Q2

REPORT INFORMATION
  Report Type: Other
  Country: CN (occurrence: CN)
  Receive Date: 20240419
  Receipt Date: 20240419
  Transmission Date: 20240716
  Serious: Yes (Other)
  Sender: FDA-Public Use
  Company Number: CN-QILU PHARMACEUTICAL (HAINAN) CO.  LTD.-QLH-000064-2024

PATIENT
  Age: 71 Year
  Sex: Female
  Weight: 56 kg

DRUGS (16)
  1. OXALIPLATIN [Suspect]
     Active Substance: OXALIPLATIN
     Indication: Gastric cancer
     Dosage: 160 MG, EVERY 3 WEEKS, ON DAY 1
     Route: 041
     Dates: start: 20231204, end: 20231204
  2. OXALIPLATIN [Suspect]
     Active Substance: OXALIPLATIN
     Dosage: 160 MG, EVERY 3 WEEKS, ON DAY 1
     Route: 041
     Dates: start: 20231227, end: 20231227
  3. OXALIPLATIN [Suspect]
     Active Substance: OXALIPLATIN
     Dosage: 160 MG, EVERY 3 WEEKS, ON DAY 1
     Route: 041
     Dates: start: 20240131, end: 20240131
  4. OXALIPLATIN [Suspect]
     Active Substance: OXALIPLATIN
     Dosage: 160 MG, EVERY 3 WEEKS, ON DAY 1
     Route: 041
     Dates: start: 20240308, end: 20240308
  5. OXALIPLATIN [Suspect]
     Active Substance: OXALIPLATIN
     Dosage: 160 MG, EVERY 3 WEEKS, ON DAY 1
     Route: 041
     Dates: start: 20240403, end: 20240403
  6. SINTILIMAB [Suspect]
     Active Substance: SINTILIMAB
     Indication: Gastric cancer
     Dosage: 200 MG, EVERY 3 WEEKS, ON DAY 1
     Route: 041
     Dates: start: 20231204, end: 20231204
  7. SINTILIMAB [Suspect]
     Active Substance: SINTILIMAB
     Dosage: 200 MG, EVERY 3 WEEKS, ON DAY 1
     Route: 041
     Dates: start: 20231227, end: 20231227
  8. SINTILIMAB [Suspect]
     Active Substance: SINTILIMAB
     Dosage: 200 MG, EVERY 3 WEEKS, ON DAY 1
     Route: 041
     Dates: start: 20240131, end: 20240131
  9. SINTILIMAB [Suspect]
     Active Substance: SINTILIMAB
     Dosage: 200 MG, EVERY 3 WEEKS, ON DAY 1
     Route: 041
     Dates: start: 20240308, end: 20240308
  10. SINTILIMAB [Suspect]
     Active Substance: SINTILIMAB
     Dosage: 200 MG, EVERY 3 WEEKS, ON DAY 1
     Route: 041
     Dates: start: 20240403, end: 20240403
  11. GIMERACIL\OTERACIL\TEGAFUR [Suspect]
     Active Substance: GIMERACIL\OTERACIL POTASSIUM\TEGAFUR
     Indication: Gastric cancer
     Dosage: 60 MG, BID, ON DAY 1 TO 14
     Route: 048
     Dates: start: 20231204, end: 20231217
  12. GIMERACIL\OTERACIL\TEGAFUR [Suspect]
     Active Substance: GIMERACIL\OTERACIL POTASSIUM\TEGAFUR
     Dosage: 60 MG, BID, ON DAY 1 TO 14
     Route: 048
     Dates: start: 20231227, end: 20240109
  13. GIMERACIL\OTERACIL\TEGAFUR [Suspect]
     Active Substance: GIMERACIL\OTERACIL POTASSIUM\TEGAFUR
     Dosage: 60 MG, BID, ON DAY 1 TO 14
     Route: 048
     Dates: start: 20240131, end: 20240213
  14. GIMERACIL\OTERACIL\TEGAFUR [Suspect]
     Active Substance: GIMERACIL\OTERACIL POTASSIUM\TEGAFUR
     Dosage: 60 MG, BID, ON DAY 1 TO 14
     Route: 048
     Dates: start: 20240308, end: 20240321
  15. GIMERACIL\OTERACIL\TEGAFUR [Suspect]
     Active Substance: GIMERACIL\OTERACIL POTASSIUM\TEGAFUR
     Dosage: 60 MG, BID, ON DAY 1 TO 14
     Route: 048
     Dates: start: 20240403, end: 20240407
  16. EUTHYROX [Concomitant]
     Active Substance: LEVOTHYROXINE SODIUM
     Indication: Hypothyroidism
     Dosage: UNK
     Route: 048

REACTIONS (2)
  - Adrenal insufficiency [Unknown]
  - Product use in unapproved indication [Recovered/Resolved]

NARRATIVE: CASE EVENT DATE: 20240406
